FAERS Safety Report 13601309 (Version 1)
Quarter: 2017Q2

REPORT INFORMATION
  Report Type: Report from Study
  Country: NL (occurrence: NL)
  Receive Date: 20170601
  Receipt Date: 20170601
  Transmission Date: 20170830
  Serious: Yes (Hospitalization, Other)
  Sender: FDA-Public Use
  Company Number: NL-BRISTOL-MYERS SQUIBB COMPANY-BMS-2015-092194

PATIENT
  Sex: Female

DRUGS (2)
  1. NIVOLUMAB [Suspect]
     Active Substance: NIVOLUMAB
     Indication: MALIGNANT MELANOMA
     Dosage: 81 MG, Q3WK
     Route: 042
     Dates: start: 20150924
  2. IPILIMUMAB [Suspect]
     Active Substance: IPILIMUMAB
     Indication: MALIGNANT MELANOMA
     Dosage: 243 MG, Q3WK
     Route: 042
     Dates: start: 20150924

REACTIONS (2)
  - Hyperthyroidism [Recovering/Resolving]
  - Hepatic pain [Recovered/Resolved]

NARRATIVE: CASE EVENT DATE: 20151227
